FAERS Safety Report 25390848 (Version 1)
Quarter: 2025Q2

REPORT INFORMATION
  Report Type: Spontaneous
  Country: US (occurrence: US)
  Receive Date: 20250603
  Receipt Date: 20250603
  Transmission Date: 20250716
  Serious: No
  Sender: DR REDDYS
  Company Number: US-DRL-USA-USA/2025/05/007737

PATIENT

DRUGS (3)
  1. ZENATANE [Suspect]
     Active Substance: ISOTRETINOIN
     Indication: Product used for unknown indication
  2. ZENATANE [Suspect]
     Active Substance: ISOTRETINOIN
  3. ZENATANE [Suspect]
     Active Substance: ISOTRETINOIN

REACTIONS (1)
  - Adverse drug reaction [Unknown]
